FAERS Safety Report 13514605 (Version 1)
Quarter: 2017Q2

REPORT INFORMATION
  Report Type: Spontaneous
  Country: BR (occurrence: BR)
  Receive Date: 20170504
  Receipt Date: 20170504
  Transmission Date: 20170830
  Serious: Yes (Hospitalization)
  Sender: FDA-Public Use
  Company Number: PHHY2017BR063793

PATIENT
  Age: 72 Year
  Sex: Female
  Weight: 82 kg

DRUGS (1)
  1. DIOVAN HCT [Suspect]
     Active Substance: HYDROCHLOROTHIAZIDE\VALSARTAN
     Indication: HYPERTENSION
     Dosage: 160 / 12.5 MG (1 TABLET IN THE MORNING IN THE BREAKFAST)
     Route: 048
     Dates: end: 20170408

REACTIONS (5)
  - Cerebrovascular accident [Recovered/Resolved]
  - Malaise [Unknown]
  - Ischaemia [Recovered/Resolved]
  - Peripheral swelling [Recovered/Resolved]
  - Renal disorder [Recovered/Resolved]

NARRATIVE: CASE EVENT DATE: 20170408
